FAERS Safety Report 7050445-9 (Version None)
Quarter: 2010Q4

REPORT INFORMATION
  Report Type: 
  Country: None (occurrence: None)
  Receive Date: 20101018
  Receipt Date: 20101002
  Transmission Date: 20110411
  Serious: Yes (Other)
  Sender: FDA-Public Use
  Company Number: PHHY2010MX65591

PATIENT
  Age: 68 Year
  Sex: Female

DRUGS (1)
  1. EXFORGE [Suspect]
     Indication: HYPERTENSION
     Dosage: 160/5 MG, ONE TABLET
     Route: 048
     Dates: start: 20100901

REACTIONS (2)
  - BLOOD GLUCOSE INCREASED [None]
  - CATARACT OPERATION [None]
